FAERS Safety Report 4268090-7 (Version None)
Quarter: 2004Q1

REPORT INFORMATION
  Report Type: 
  Country: None (occurrence: None)
  Receive Date: 20040109
  Receipt Date: 20040109
  Transmission Date: 20041129
  Serious: Yes (Hospitalization, Other)
  Sender: FDA-Public Use
  Company Number: None

PATIENT
  Sex: Female

DRUGS (6)
  1. HUMULIN R [Suspect]
     Indication: DIABETES MELLITUS INSULIN-DEPENDENT
     Dosage: MULTIPLE DAY SUBCUTANEOUS
     Route: 058
     Dates: start: 19930701, end: 20010701
  2. LANTUS [Suspect]
     Indication: DIABETES MELLITUS INSULIN-DEPENDENT
     Dosage: TWICE DAY
     Route: 058
     Dates: start: 20010701, end: 20030501
  3. PORK R [Concomitant]
  4. NPH INSULINS [Concomitant]
  5. HUMULIN N [Suspect]
     Indication: DIABETES MELLITUS INSULIN-DEPENDENT
     Dosage: MULTIPLE DAY SC
     Route: 058
     Dates: start: 19930701, end: 20010701
  6. HUMALOG [Suspect]
     Indication: DIABETES MELLITUS INSULIN-DEPENDENT
     Dosage: MULTIPLE DAY
     Dates: start: 19930701, end: 20010701

REACTIONS (4)
  - BLOOD GLUCOSE FLUCTUATION [None]
  - DEPRESSION [None]
  - DIZZINESS [None]
  - HYPOGLYCAEMIA [None]
